FAERS Safety Report 5699722-4 (Version None)
Quarter: 2008Q2

REPORT INFORMATION
  Report Type: 
  Country: None (occurrence: None)
  Receive Date: 20080410
  Receipt Date: 20080403
  Transmission Date: 20081010
  Serious: Yes (Other)
  Sender: FDA-Public Use
  Company Number: PHEH2008US03449

PATIENT
  Age: 88 Year
  Sex: Female

DRUGS (3)
  1. SEROQUEL [Concomitant]
     Dosage: 25 MG, UNK
  2. PROTONIX [Concomitant]
  3. EXELON [Suspect]
     Dosage: 9.5 MG, UNK

REACTIONS (5)
  - ERYTHEMA [None]
  - MORBID THOUGHTS [None]
  - SKIN IRRITATION [None]
  - STOMACH DISCOMFORT [None]
  - VOMITING [None]
